FAERS Safety Report 10043689 (Version 1)
Quarter: 2014Q1

REPORT INFORMATION
  Report Type: Spontaneous
  Country: GB (occurrence: GB)
  Receive Date: 20140328
  Receipt Date: 20140328
  Transmission Date: 20141002
  Serious: Yes (Other)
  Sender: FDA-Public Use
  Company Number: GB-JNJFOC-20140311007

PATIENT
  Sex: Male

DRUGS (1)
  1. XEPLION [Suspect]
     Indication: PRODUCT USED FOR UNKNOWN INDICATION
     Route: 030

REACTIONS (5)
  - Hallucination, auditory [Unknown]
  - Injection site reaction [Unknown]
  - Injection site pain [Unknown]
  - Injection site discomfort [Unknown]
  - Malaise [Unknown]
